FAERS Safety Report 5796224-1 (Version None)
Quarter: 2008Q3

REPORT INFORMATION
  Report Type: 
  Country: None (occurrence: None)
  Receive Date: 20080701
  Receipt Date: 20080623
  Transmission Date: 20090109
  Serious: Yes (Other)
  Sender: FDA-Public Use
  Company Number: CR-ROCHE-572250

PATIENT
  Age: 34 Year
  Sex: Female

DRUGS (1)
  1. XENICAL [Suspect]
     Indication: OVERWEIGHT
     Route: 048
     Dates: start: 20080619, end: 20080621

REACTIONS (1)
  - DENGUE FEVER [None]
